FAERS Safety Report 7236285-6 (Version None)
Quarter: 2011Q1

REPORT INFORMATION
  Report Type: 
  Country: None (occurrence: None)
  Receive Date: 20110120
  Receipt Date: 20110107
  Transmission Date: 20110831
  Serious: No
  Sender: FDA-Public Use
  Company Number: DE-ELI_LILLY_AND_COMPANY-DE201101001667

PATIENT
  Age: 10 Year
  Sex: Male

DRUGS (1)
  1. STRATTERA [Suspect]
     Indication: ATTENTION DEFICIT/HYPERACTIVITY DISORDER
     Dosage: 36 MG, DAILY (1/D)
     Dates: start: 20080701, end: 20100801

REACTIONS (3)
  - GLUCOSE URINE PRESENT [None]
  - BLOOD GLUCOSE INCREASED [None]
  - DIABETES MELLITUS [None]
